FAERS Safety Report 6733507-2 (Version None)
Quarter: 2010Q2

REPORT INFORMATION
  Report Type: 
  Country: None (occurrence: None)
  Receive Date: 20100520
  Receipt Date: 20100520
  Transmission Date: 20101027
  Serious: Yes (Hospitalization)
  Sender: FDA-Public Use
  Company Number: PHHO2009GB08521

PATIENT
  Sex: Female
  Weight: 68.5 kg

DRUGS (7)
  1. ALISKIREN ALI+TAB+HT [Suspect]
     Indication: ESSENTIAL HYPERTENSION
     Dosage: RUN IN PHASE
     Route: 048
     Dates: start: 20090303
  2. ALISKIREN ALI+TAB+HT [Suspect]
     Dosage: 150 MG
     Route: 048
     Dates: start: 20090331, end: 20090708
  3. ALISKIREN ALI+TAB+HT [Suspect]
     Dosage: NO TREATMENT
     Dates: start: 20090709
  4. AMLODIPINE [Suspect]
     Indication: HYPERTENSION
     Dosage: RUN IN PHASE
     Dates: start: 20090303
  5. AMLODIPINE [Suspect]
     Dosage: 5 MG
     Route: 048
     Dates: start: 20090331, end: 20090708
  6. AMLODIPINE [Suspect]
     Dosage: NO TREATMENT
     Dates: start: 20090309
  7. IBUPROFEN [Suspect]
     Dosage: 400MG TDS
     Route: 048
     Dates: start: 20090629, end: 20090701

REACTIONS (5)
  - JOINT SWELLING [None]
  - OEDEMA PERIPHERAL [None]
  - PURPURA [None]
  - RASH [None]
  - VASCULITIS [None]
